FAERS Safety Report 8334095 (Version 2)
Quarter: 2013Q2

REPORT INFORMATION
  Report Type: Spontaneous
  Country: US (occurrence: None)
  Receive Date: 20111130
  Receipt Date: 20120531
  Transmission Date: 20140414
  Serious: Yes (Hospitalization, Disabling, Other)
  Sender: FDA-Public Use
  Company Number: US201106004348

PATIENT
  Age: 55 Year
  Sex: Male
  Weight: 124.7 kg

DRUGS (5)
  1. BYETTA [Suspect]
  2. LIPITOR (ATORVASTATIN CALCIUM) [Concomitant]
  3. METFORMIN (METFORMIN) [Concomitant]
  4. DIOVAN (VALSARTAN) [Concomitant]
  5. ASPIRIN (ACETYLSALICYLIC ACID) [Concomitant]

REACTIONS (2)
  - PANCREATITIS [None]
  - RENAL DISORDER [None]
